FAERS Safety Report 10143250 (Version 2)
Quarter: 2014Q2

REPORT INFORMATION
  Report Type: Spontaneous
  Country: TR (occurrence: TR)
  Receive Date: 20140430
  Receipt Date: 20140513
  Transmission Date: 20141212
  Serious: Yes (Hospitalization)
  Sender: FDA-Public Use
  Company Number: TR-PFIZER INC-2014117427

PATIENT
  Age: 13 Year
  Sex: 0
  Weight: 40 kg

DRUGS (2)
  1. NORVASC [Suspect]
     Indication: SUICIDE ATTEMPT
     Dosage: 17 DF, SINGLE (TABLET OF 10MG)
  2. GALENIC /HYDROCHLOROTHIAZIDE/VALSARTAN/ [Suspect]
     Indication: SUICIDE ATTEMPT
     Dosage: 14 DF, SINGLE (TABLET OF 160/12,5 MG)

REACTIONS (3)
  - Suicide attempt [Recovered/Resolved]
  - Overdose [Recovered/Resolved]
  - Hypotension [Recovered/Resolved]
